FAERS Safety Report 7500322-1 (Version None)
Quarter: 2011Q2

REPORT INFORMATION
  Report Type: 
  Country: None (occurrence: None)
  Receive Date: 20110524
  Receipt Date: 20100602
  Transmission Date: 20111010
  Serious: No
  Sender: FDA-Public Use
  Company Number: US-NOVEN-ALL1-2010-02371

PATIENT

DRUGS (5)
  1. ZYRTEC [Concomitant]
     Dosage: 10 MG, 1X/DAY:QD
     Route: 048
     Dates: start: 20050101
  2. KEPPRA XR [Concomitant]
     Dosage: 1000 MG, 1X/DAY:QD (TWO 500 MG. TABLETS)
     Route: 048
     Dates: start: 20091201
  3. TRILEPTAL [Concomitant]
     Dosage: 600 MG, 2X/DAY:BID
     Route: 048
     Dates: start: 20060101
  4. DAYTRANA [Suspect]
     Dosage: 30 MG, 1X/DAY:QD
     Route: 062
     Dates: start: 20090101
  5. SINGULAIR [Concomitant]
     Dosage: 5 MG, 1X/DAY:QD
     Route: 048
     Dates: start: 20060101

REACTIONS (4)
  - WRONG TECHNIQUE IN DRUG USAGE PROCESS [None]
  - DRUG ADMINISTERED AT INAPPROPRIATE SITE [None]
  - APPLICATION SITE ERYTHEMA [None]
  - PRODUCT QUALITY ISSUE [None]
